FAERS Safety Report 16820185 (Version 2)
Quarter: 2019Q4

REPORT INFORMATION
  Report Type: Spontaneous
  Country: US (occurrence: US)
  Receive Date: 20190918
  Receipt Date: 20191005
  Transmission Date: 20200122
  Serious: No
  Sender: FDA-Public Use
  Company Number: US-BIOGEN-2019BI00766579

PATIENT
  Sex: Female

DRUGS (7)
  1. LUTEIN [Concomitant]
     Active Substance: LUTEIN
     Route: 065
  2. TYLENOL [Concomitant]
     Active Substance: ACETAMINOPHEN
     Route: 065
  3. VIACTIV [Concomitant]
     Active Substance: CALCIUM\VITAMIN D\VITAMIN K5
     Route: 065
  4. HYDROXYZINE HYDROCHLORIDE. [Concomitant]
     Active Substance: HYDROXYZINE HYDROCHLORIDE
     Route: 065
  5. TECFIDERA [Suspect]
     Active Substance: DIMETHYL FUMARATE
     Indication: MULTIPLE SCLEROSIS
     Dosage: TAKE 1 CAPSULE BY?MOUTH TWICE A DAY
     Route: 048
     Dates: start: 20190423
  6. METOPROLOL SUCCINATE. [Concomitant]
     Active Substance: METOPROLOL SUCCINATE
     Route: 065
  7. ASPIRIN. [Concomitant]
     Active Substance: ASPIRIN
     Route: 065

REACTIONS (7)
  - Ear infection [Recovered/Resolved]
  - Drug ineffective [Unknown]
  - Fatigue [Unknown]
  - Bronchitis [Recovered/Resolved]
  - Sinusitis [Recovered/Resolved]
  - Hypoaesthesia [Unknown]
  - Muscular weakness [Unknown]
